FAERS Safety Report 8610300-7 (Version None)
Quarter: 2012Q3

REPORT INFORMATION
  Report Type: 
  Country: None (occurrence: None)
  Receive Date: 20120822
  Receipt Date: 20120817
  Transmission Date: 20120928
  Serious: Yes (Hospitalization)
  Sender: FDA-Public Use
  Company Number: PHHO2012DE010221

PATIENT
  Age: 38 Year
  Sex: Male
  Weight: 57 kg

DRUGS (4)
  1. PREDNISOLONE [Concomitant]
     Indication: PANCREAS TRANSPLANT
     Dosage: 5 MG, QD
     Route: 048
     Dates: start: 20120220
  2. MYCOPHENOLIC ACID [Suspect]
     Dosage: 720 MG, BID
     Route: 048
     Dates: start: 20120816
  3. MYCOPHENOLIC ACID [Suspect]
     Indication: PANCREAS TRANSPLANT
     Dosage: 720 MG, BID
     Route: 048
     Dates: start: 20120220, end: 20120705
  4. PROGRAF [Concomitant]
     Indication: PANCREAS TRANSPLANT
     Dosage: 4 MG, BID
     Route: 048
     Dates: start: 20120220

REACTIONS (1)
  - FEMUR FRACTURE [None]
